FAERS Safety Report 17996571 (Version 1)
Quarter: 2020Q3

REPORT INFORMATION
  Report Type: Spontaneous
  Country: CA (occurrence: CA)
  Receive Date: 20200709
  Receipt Date: 20200709
  Transmission Date: 20201103
  Serious: Yes (Hospitalization)
  Sender: FDA-Public Use
  Company Number: CA-TEVA-2020-CA-1797309

PATIENT
  Age: 14 Year
  Sex: Male

DRUGS (19)
  1. CETIRIZINE [Concomitant]
     Active Substance: CETIRIZINE HYDROCHLORIDE
  2. ESCITALOPRAM [Concomitant]
     Active Substance: ESCITALOPRAM OXALATE
  3. HEPARIN (PORCINE) [Concomitant]
  4. SODIUM BICARBONATE. [Concomitant]
     Active Substance: SODIUM BICARBONATE
  5. MAGNESIUM [Concomitant]
     Active Substance: MAGNESIUM
  6. OMEPRAZOLE. [Concomitant]
     Active Substance: OMEPRAZOLE
  7. ONDANSETRON [Concomitant]
     Active Substance: ONDANSETRON
  8. ETOPOSIDE LIQ IV 20MG/ML [Suspect]
     Active Substance: ETOPOSIDE
     Indication: NEOPLASM MALIGNANT
  9. IFEX [Suspect]
     Active Substance: IFOSFAMIDE
     Indication: NEOPLASM MALIGNANT
  10. ACETAMINOPHEN. [Concomitant]
     Active Substance: ACETAMINOPHEN
  11. HYDROMORPHONE [Concomitant]
     Active Substance: HYDROMORPHONE
  12. LORAZEPAM. [Concomitant]
     Active Substance: LORAZEPAM
  13. NABILONE [Concomitant]
     Active Substance: NABILONE
  14. DEXAMETHASONE. [Concomitant]
     Active Substance: DEXAMETHASONE
  15. SENNOSIDES. [Concomitant]
     Active Substance: SENNOSIDES
  16. FILGRASTIM [Concomitant]
     Active Substance: FILGRASTIM
  17. GABAPENTIN. [Concomitant]
     Active Substance: GABAPENTIN
  18. ESCITALOPRAM [Concomitant]
     Active Substance: ESCITALOPRAM OXALATE
  19. POLYETHYLENE GLYCOL [Concomitant]
     Active Substance: POLYETHYLENE GLYCOLS

REACTIONS (1)
  - Febrile neutropenia [Recovering/Resolving]
